FAERS Safety Report 7034479-6 (Version None)
Quarter: 2010Q4

REPORT INFORMATION
  Report Type: 
  Country: None (occurrence: None)
  Receive Date: 20101008
  Receipt Date: 20101005
  Transmission Date: 20110411
  Serious: Yes (Life-Threatening, Hospitalization)
  Sender: FDA-Public Use
  Company Number: PHFR2010GB01599

PATIENT
  Sex: Female

DRUGS (6)
  1. CLOZARIL [Suspect]
     Indication: SCHIZOPHRENIA
     Dosage: 275 MG, QD
     Route: 048
     Dates: start: 20090911
  2. LAMOTRIGINE [Concomitant]
     Indication: SCHIZOPHRENIA
     Dosage: 75 MG, UNK
     Route: 048
     Dates: start: 20100323
  3. ARIPIPRAZOLE [Concomitant]
     Indication: SCHIZOPHRENIA
     Dosage: 10 MG, UNK
     Route: 048
     Dates: start: 20091117
  4. LEVOTHYROXINE [Concomitant]
     Indication: HYPOTHYROIDISM
     Dosage: 50 UG, UNK
     Route: 048
  5. BENDROFLUMETHIAZIDE [Concomitant]
     Indication: HYPERTENSION
     Dosage: 25 MG, UNK
     Route: 048
  6. SENNA [Concomitant]
     Dosage: 15 MG, UNK
     Route: 048

REACTIONS (4)
  - ABDOMINAL PAIN [None]
  - APPENDICECTOMY [None]
  - APPENDICITIS [None]
  - WOUND INFECTION [None]
